FAERS Safety Report 16289366 (Version 4)
Quarter: 2019Q4

REPORT INFORMATION
  Report Type: Spontaneous
  Country: US (occurrence: US)
  Receive Date: 20190509
  Receipt Date: 20191002
  Transmission Date: 20200122
  Serious: No
  Sender: FDA-Public Use
  Company Number: US-GW PHARMA-201903USGW0652

PATIENT

DRUGS (1)
  1. EPIDIOLEX [Suspect]
     Active Substance: CANNABIDIOL
     Indication: EPILEPSY
     Dosage: 350 MILLIGRAM, BID
     Route: 048

REACTIONS (3)
  - Malaise [Unknown]
  - Neck pain [Unknown]
  - Chills [Unknown]

NARRATIVE: CASE EVENT DATE: 20190318
